FAERS Safety Report 14289086 (Version 4)
Quarter: 2018Q1

REPORT INFORMATION
  Report Type: Spontaneous
  Country: US (occurrence: US)
  Receive Date: 20171215
  Receipt Date: 20180226
  Transmission Date: 20180509
  Serious: No
  Sender: FDA-Public Use
  Company Number: US-PFIZER INC-2017533949

PATIENT
  Age: 5 Year
  Sex: Female
  Weight: 27 kg

DRUGS (3)
  1. QUILLIVANT XR [Suspect]
     Active Substance: METHYLPHENIDATE HYDROCHLORIDE
     Indication: ATTENTION DEFICIT/HYPERACTIVITY DISORDER
     Dosage: 8 ML, DAILY(6CCS IN THE MORNING AND 2CCS IN THE AFTERNOON)
  2. QUILLIVANT XR [Suspect]
     Active Substance: METHYLPHENIDATE HYDROCHLORIDE
     Indication: OPPOSITIONAL DEFIANT DISORDER
     Dosage: 10 ML, DAILY (6CCS IN THE MORNING AND 4CCS IN THE AFTERNOON)
     Route: 048
     Dates: start: 20171108
  3. MELATONIN [Concomitant]
     Active Substance: MELATONIN
     Indication: SLEEP DISORDER
     Dosage: 1 MG, DAILY, ^AT NIGHT^

REACTIONS (5)
  - Sinusitis [Not Recovered/Not Resolved]
  - Appetite disorder [Recovering/Resolving]
  - Insomnia [Recovered/Resolved]
  - Drug effect decreased [Unknown]
  - Product use issue [Unknown]

NARRATIVE: CASE EVENT DATE: 2014
